FAERS Safety Report 5595088-9 (Version None)
Quarter: 2008Q1

REPORT INFORMATION
  Report Type: 
  Country: None (occurrence: None)
  Receive Date: 20080117
  Receipt Date: 20080107
  Transmission Date: 20080703
  Serious: Yes (Hospitalization)
  Sender: FDA-Public Use
  Company Number: US-SANOFI-SYNTHELABO-A03200800046

PATIENT
  Sex: Female

DRUGS (8)
  1. WARFARIN SODIUM [Suspect]
     Indication: PROPHYLAXIS
     Route: 048
     Dates: start: 20070531
  2. WARFARIN SODIUM [Suspect]
     Indication: EMBOLISM
     Route: 048
     Dates: start: 20070531
  3. WARFARIN SODIUM [Suspect]
     Dosage: UNK
     Route: 065
     Dates: start: 20071127
  4. WARFARIN SODIUM [Suspect]
     Dosage: UNK
     Route: 065
     Dates: start: 20071127
  5. ASPIRIN [Suspect]
     Indication: CORONARY ARTERY DISEASE
     Route: 065
     Dates: start: 20071012, end: 20071123
  6. ASPIRIN [Suspect]
     Indication: STENT PLACEMENT
     Route: 065
     Dates: start: 20071012, end: 20071123
  7. PLAVIX [Suspect]
     Indication: CORONARY ARTERY DISEASE
     Route: 048
     Dates: start: 20071011
  8. PLAVIX [Suspect]
     Indication: STENT PLACEMENT
     Route: 048
     Dates: start: 20071011

REACTIONS (3)
  - ANAEMIA [None]
  - CHRONIC OBSTRUCTIVE PULMONARY DISEASE [None]
  - EPISTAXIS [None]
